FAERS Safety Report 8882597 (Version 3)
Quarter: 2014Q1

REPORT INFORMATION
  Report Type: Spontaneous
  Country: GB (occurrence: GB)
  Receive Date: 20121102
  Receipt Date: 20140121
  Transmission Date: 20141002
  Serious: Yes (Life-Threatening, Hospitalization)
  Sender: FDA-Public Use
  Company Number: PHHY2012GB099314

PATIENT
  Age: 72 Year
  Sex: 0

DRUGS (9)
  1. TRIMETHOPRIM [Suspect]
     Indication: URINARY TRACT INFECTION
     Dosage: 200 MG, BID
     Route: 048
     Dates: start: 20110305, end: 20110305
  2. CO-AMOXICLAV [Suspect]
     Indication: SEPSIS
     Dosage: 1.2 G, TID
     Route: 041
     Dates: start: 20110328, end: 20110403
  3. CEFUROXIME [Suspect]
     Dosage: 1.5 G
     Route: 041
     Dates: start: 20110308, end: 20110308
  4. CEFTRIAXONE [Suspect]
     Indication: PANCREATITIS
     Dosage: 1 G, QD
     Route: 041
     Dates: start: 20110308, end: 20110308
  5. METRONIDAZOLE [Suspect]
     Dosage: 500 MG, TID (100MG/20ML SOLUTION FOR INFUSION AMPOULES)
     Route: 041
     Dates: start: 20110308, end: 20110308
  6. ERYTHROMYCIN [Suspect]
     Dosage: 125 MG, TID
     Route: 042
     Dates: start: 20110319, end: 20110321
  7. PIPERACILLIN AND TAZOBACTAM [Suspect]
     Indication: PNEUMONIA
     Dosage: 4.5 G, TID
     Route: 041
     Dates: start: 20110420, end: 20110425
  8. MEROPENEM [Suspect]
     Indication: PANCREATITIS NECROTISING
     Dosage: 1 G, TID
     Route: 041
     Dates: start: 20110309, end: 20110313
  9. FLUCLOXACILLIN [Suspect]
     Dosage: 500 MG, QID
     Route: 048
     Dates: start: 20100908

REACTIONS (1)
  - Clostridium test positive [Recovered/Resolved]
